FAERS Safety Report 6105881-1 (Version None)
Quarter: 2009Q1

REPORT INFORMATION
  Report Type: 
  Country: None (occurrence: None)
  Receive Date: 20090306
  Receipt Date: 20090302
  Transmission Date: 20090719
  Serious: Yes (Hospitalization)
  Sender: FDA-Public Use
  Company Number: SE-PFIZER INC-2009177528

PATIENT

DRUGS (12)
  1. DOXAZOSIN MESYLATE [Suspect]
     Indication: HYPERTENSION
  2. SOTALOL [Suspect]
     Indication: ATRIAL FIBRILLATION
  3. WARFARIN SODIUM [Suspect]
     Indication: ATRIAL FIBRILLATION
  4. FELODIPINE [Concomitant]
     Dosage: 5 MG, UNK
     Route: 048
  5. ATACAND [Concomitant]
     Dosage: 8 MG, UNK
     Route: 048
  6. NULYTELY [Concomitant]
     Dosage: UNK
  7. FOLIC ACID [Concomitant]
     Dosage: 5 MG, UNK
     Route: 048
  8. DUROFERON [Concomitant]
     Dosage: 100 MG, UNK
     Route: 048
  9. LASIX [Concomitant]
     Dosage: 30 MG, UNK
     Route: 048
  10. ACETAMINOPHEN W/ CODEINE [Concomitant]
     Dosage: UNK
  11. ALLOPURINOL [Concomitant]
     Dosage: UNK
  12. CALCICHEW-D3 [Concomitant]
     Dosage: UNK

REACTIONS (2)
  - ORTHOSTATIC HYPOTENSION [None]
  - SUBARACHNOID HAEMORRHAGE [None]
